FAERS Safety Report 5205792-X (Version None)
Quarter: 2007Q1

REPORT INFORMATION
  Report Type: 
  Country: None (occurrence: None)
  Receive Date: 20070111
  Receipt Date: 20070103
  Transmission Date: 20070707
  Serious: Yes (Other)
  Sender: FDA-Public Use
  Company Number: BR-ROCHE-477222

PATIENT
  Sex: Female
  Weight: 67 kg

DRUGS (1)
  1. XENICAL [Suspect]
     Indication: WEIGHT CONTROL
     Route: 048
     Dates: start: 20050615

REACTIONS (3)
  - CONSTIPATION [None]
  - NO THERAPEUTIC RESPONSE [None]
  - SPINAL DISORDER [None]
